FAERS Safety Report 13948107 (Version 4)
Quarter: 2017Q4

REPORT INFORMATION
  Report Type: Report from Study
  Country: None (occurrence: TW)
  Receive Date: 20170908
  Receipt Date: 20171005
  Transmission Date: 20180320
  Serious: Yes (Hospitalization)
  Sender: FDA-Public Use
  Company Number: TW-ABBVIE-17K-153-2091750-00

PATIENT
  Age: 42 Year
  Sex: Male
  Weight: 74.5 kg

DRUGS (1)
  1. HUMIRA [Suspect]
     Active Substance: ADALIMUMAB
     Indication: RHEUMATOID ARTHRITIS
     Route: 058
     Dates: start: 20131231

REACTIONS (4)
  - Vertebral artery occlusion [Unknown]
  - Cerebellar infarction [Recovered/Resolved with Sequelae]
  - Cerebrovascular accident [Recovered/Resolved with Sequelae]
  - Hypertension [Unknown]

NARRATIVE: CASE EVENT DATE: 20170816
